FAERS Safety Report 19890404 (Version 2)
Quarter: 2021Q4

REPORT INFORMATION
  Report Type: Report from Study
  Country: US (occurrence: US)
  Receive Date: 20210928
  Receipt Date: 20211108
  Transmission Date: 20220303
  Serious: Yes (Death)
  Sender: FDA-Public Use
  Company Number: US-VANDA PHARMACEUTICALS, INC-2021TASUS005291

PATIENT
  Age: 67 Year
  Sex: Male
  Weight: 62.585 kg

DRUGS (1)
  1. HETLIOZ [Suspect]
     Active Substance: TASIMELTEON
     Indication: Non-24-hour sleep-wake disorder
     Dosage: 20 MILLIGRAM, QD 1 HOUR BEFORE BEDTIME WITHOUT FOOD
     Route: 048

REACTIONS (2)
  - Colon cancer [Fatal]
  - Death [Fatal]

NARRATIVE: CASE EVENT DATE: 20200101
